FAERS Safety Report 4532082-0 (Version None)
Quarter: 2004Q4

REPORT INFORMATION
  Report Type: 
  Country: None (occurrence: None)
  Receive Date: 20041217
  Receipt Date: 20041202
  Transmission Date: 20050328
  Serious: Yes (Hospitalization, Other)
  Sender: FDA-Public Use
  Company Number: 167-20785-04100512

PATIENT
  Age: 59 Year
  Sex: Female

DRUGS (4)
  1. THALIDOMIDE - PHARMION (THALIDOMIDE) (100 MILLIGRAM, CAPSULES) [Suspect]
     Indication: NON-SMALL CELL LUNG CANCER
     Dosage: 100 MG, QD, ORAL
     Route: 048
     Dates: start: 20040924, end: 20041013
  2. GEMCITABINE (GEMCITABINE) [Suspect]
     Indication: NON-SMALL CELL LUNG CANCER
     Dosage: 1976 MG, INTRAVENOUS
     Route: 042
     Dates: start: 20040922
  3. GEMCITABINE (GEMCITABINE) [Suspect]
     Indication: NON-SMALL CELL LUNG CANCER
     Dosage: 1976 MG, INTRAVENOUS
     Route: 042
     Dates: start: 20040929
  4. CARBOPLATIN [Suspect]
     Indication: NON-SMALL CELL LUNG CANCER
     Dosage: 590 MG, INTRAVENOUS
     Route: 042
     Dates: start: 20040929

REACTIONS (3)
  - AXILLARY VEIN THROMBOSIS [None]
  - PLEURAL EFFUSION [None]
  - THROMBOCYTHAEMIA [None]
